FAERS Safety Report 10908366 (Version 1)
Quarter: 2015Q1

REPORT INFORMATION
  Report Type: Spontaneous
  Country: US (occurrence: US)
  Receive Date: 20150312
  Receipt Date: 20150312
  Transmission Date: 20150721
  Serious: Yes (Hospitalization, Other)
  Sender: FDA-Public Use
  Company Number: US-ELI_LILLY_AND_COMPANY-US201503002690

PATIENT
  Sex: Female

DRUGS (1)
  1. FORTEO [Suspect]
     Active Substance: TERIPARATIDE
     Indication: SPINAL DISORDER
     Dosage: UNK, QD
     Route: 065
     Dates: start: 201412, end: 201412

REACTIONS (5)
  - Blood calcium increased [Not Recovered/Not Resolved]
  - Off label use [Recovered/Resolved]
  - Tachycardia [Unknown]
  - Plasma cell myeloma [Unknown]
  - Renal failure [Unknown]

NARRATIVE: CASE EVENT DATE: 201412
